FAERS Safety Report 6638438-4 (Version None)
Quarter: 2010Q1

REPORT INFORMATION
  Report Type: 
  Country: None (occurrence: None)
  Receive Date: 20100316
  Receipt Date: 20100316
  Transmission Date: 20100710
  Serious: No
  Sender: FDA-Public Use
  Company Number: None

PATIENT
  Sex: Female
  Weight: 79.3795 kg

DRUGS (4)
  1. TOFRANIL [Suspect]
     Indication: BLADDER SPASM
     Dosage: 3 TAB 2 X DAY ORAL 1 WEEK WITH BOTH TAB AND 1 WK ONLY CIRCLE TAB.
     Route: 048
     Dates: start: 20100129
  2. TOFRANIL [Suspect]
     Indication: INCONTINENCE
     Dosage: 3 TAB 2 X DAY ORAL 1 WEEK WITH BOTH TAB AND 1 WK ONLY CIRCLE TAB.
     Route: 048
     Dates: start: 20100129
  3. TOFRANIL [Suspect]
     Indication: BLADDER SPASM
     Dosage: 3 TAB 2 X DAY ORAL 1 WEEK WITH BOTH TAB AND 1 WK ONLY CIRCLE TAB.
     Route: 048
  4. TOFRANIL [Suspect]
     Indication: INCONTINENCE
     Dosage: 3 TAB 2 X DAY ORAL 1 WEEK WITH BOTH TAB AND 1 WK ONLY CIRCLE TAB.
     Route: 048

REACTIONS (3)
  - BLADDER SPASM [None]
  - INCONTINENCE [None]
  - PRODUCT SUBSTITUTION ISSUE [None]
